FAERS Safety Report 7570559-4 (Version None)
Quarter: 2011Q2

REPORT INFORMATION
  Report Type: 
  Country: None (occurrence: None)
  Receive Date: 20110622
  Receipt Date: 20110622
  Transmission Date: 20111010
  Serious: No
  Sender: FDA-Public Use
  Company Number: None

PATIENT
  Sex: Male
  Weight: 96.8 kg

DRUGS (6)
  1. METHOTREXATE [Suspect]
     Dosage: 15 MG
  2. CYTARABINE [Suspect]
     Dosage: 70 MG
  3. VINCRISTINE SULFATE [Suspect]
     Dosage: 6 MG
  4. METHYLPREDNISOLONE [Suspect]
     Dosage: 2730 MG
  5. PEG-L-ASPARAGINASE (K-H) [Suspect]
     Dosage: 5450 UNIT
  6. DAUNORUBICIN HCL [Suspect]
     Dosage: 165 MG

REACTIONS (4)
  - PULMONARY EMBOLISM [None]
  - ATRIAL FIBRILLATION [None]
  - COUGH [None]
  - DYSPNOEA [None]
